FAERS Safety Report 6899213-9 (Version None)
Quarter: 2010Q3

REPORT INFORMATION
  Report Type: 
  Country: None (occurrence: None)
  Receive Date: 20100802
  Receipt Date: 20080213
  Transmission Date: 20110219
  Serious: No
  Sender: FDA-Public Use
  Company Number: US-PFIZER INC-2007093796

PATIENT
  Sex: Female
  Weight: 73.5 kg

DRUGS (4)
  1. LYRICA [Suspect]
     Indication: FIBROMYALGIA
     Route: 048
     Dates: start: 20071017
  2. SYNTHROID [Suspect]
     Indication: THYROID DISORDER
  3. PROZAC [Concomitant]
  4. CALCIUM [Concomitant]

REACTIONS (6)
  - COORDINATION ABNORMAL [None]
  - DIZZINESS [None]
  - FEELING ABNORMAL [None]
  - FEELING DRUNK [None]
  - PAIN [None]
  - SOMNOLENCE [None]
